FAERS Safety Report 18816466 (Version 2)
Quarter: 2021Q1

REPORT INFORMATION
  Report Type: Report from Study
  Country: None (occurrence: US)
  Receive Date: 20210201
  Receipt Date: 20210202
  Transmission Date: 20210419
  Serious: Yes (Hospitalization, Other)
  Sender: FDA-Public Use
  Company Number: US-ABBVIE-21K-163-3753209-00

PATIENT
  Age: 65 Year
  Sex: Female

DRUGS (1)
  1. SKYRIZI [Suspect]
     Active Substance: RISANKIZUMAB-RZAA
     Indication: PSORIASIS
     Route: 058

REACTIONS (2)
  - Gait inability [Recovered/Resolved]
  - Nerve compression [Recovered/Resolved]

NARRATIVE: CASE EVENT DATE: 20201123
